FAERS Safety Report 23462171 (Version 1)
Quarter: 2024Q1

REPORT INFORMATION
  Report Type: Spontaneous
  Country: JP (occurrence: JP)
  Receive Date: 20240131
  Receipt Date: 20240131
  Transmission Date: 20240410
  Serious: Yes (Other)
  Sender: FDA-Public Use
  Company Number: JP-sbiph-S000167110

PATIENT
  Age: 75 Year
  Sex: Male
  Weight: 62.3 kg

DRUGS (1)
  1. AMINOLEVULINIC ACID HYDROCHLORIDE [Suspect]
     Active Substance: AMINOLEVULINIC ACID HYDROCHLORIDE
     Indication: Bladder transitional cell carcinoma
     Dosage: 1.3 G
     Route: 048
     Dates: start: 20231107, end: 20231107

REACTIONS (2)
  - Hypotension [Recovered/Resolved]
  - Heart rate decreased [Unknown]

NARRATIVE: CASE EVENT DATE: 20231107
